FAERS Safety Report 10376709 (Version 3)
Quarter: 2014Q4

REPORT INFORMATION
  Report Type: Report from Study
  Country: US (occurrence: US)
  Receive Date: 20140811
  Receipt Date: 20141105
  Transmission Date: 20150528
  Serious: Yes (Hospitalization)
  Sender: FDA-Public Use
  Company Number: US-PFIZER INC-2014219086

PATIENT
  Age: 30 Year
  Sex: Male
  Weight: 95.7 kg

DRUGS (12)
  1. CYMBALTA [Concomitant]
     Active Substance: DULOXETINE HYDROCHLORIDE
     Indication: DEPRESSION
     Dosage: 60 MG, BID
     Route: 048
     Dates: start: 20130823
  2. PF-00547659 [Suspect]
     Active Substance: INVESTIGATIONAL PRODUCT
     Indication: CROHN^S DISEASE
     Dosage: 75 MG, Q4 WEEKS
     Route: 058
     Dates: start: 20131007, end: 20131104
  3. ZYRTEC [Concomitant]
     Active Substance: CETIRIZINE HYDROCHLORIDE
     Indication: SEASONAL ALLERGY
     Dosage: 10 MG, PRN
     Route: 048
     Dates: start: 20130919
  4. SIMPONI [Concomitant]
     Active Substance: GOLIMUMAB
     Indication: CROHN^S DISEASE
     Dosage: 100 MG, Q4WEEKS
     Dates: start: 20140414
  5. VITAMIN D3 [Concomitant]
     Active Substance: CHOLECALCIFEROL
     Dosage: 5000 UNITS, BID
     Route: 048
     Dates: start: 20140611
  6. PF-00547659 [Suspect]
     Active Substance: INVESTIGATIONAL PRODUCT
     Dosage: 225 MG, Q4 WEEKS
     Route: 058
     Dates: start: 20131202, end: 20131202
  7. FERROUS SULFATE [Concomitant]
     Active Substance: FERROUS SULFATE\FERROUS SULFATE, DRIED
     Dosage: 325 MG, QD
     Route: 048
     Dates: start: 20140611
  8. FLAGYL [Suspect]
     Active Substance: METRONIDAZOLE\METRONIDAZOLE HYDROCHLORIDE
     Indication: SPLENIC ABSCESS
     Dosage: 500 MG, TID FOR 10DAYS
     Route: 048
     Dates: start: 20140628, end: 20140708
  9. LEVAQUIN [Suspect]
     Active Substance: LEVOFLOXACIN
     Indication: SPLENIC ABSCESS
     Dosage: 500 MG, QD FOR 10DAYS
     Route: 048
     Dates: start: 20140628, end: 20140708
  10. OMEPRAZOLE. [Concomitant]
     Active Substance: OMEPRAZOLE
     Indication: GASTROOESOPHAGEAL REFLUX DISEASE
     Dosage: 20 MG, QD
     Route: 048
     Dates: start: 2006
  11. OMEGA 3 [Concomitant]
     Active Substance: OMEGA-3 FATTY ACIDS
     Dosage: 1000 MG, QD
     Route: 048
     Dates: start: 20140625
  12. CULTURELLE [Concomitant]
     Active Substance: LACTOBACILLUS RHAMNOSUS
     Dosage: 10 BILLION CELL, QD
     Route: 048
     Dates: start: 20140611

REACTIONS (1)
  - Clostridium difficile infection [Recovered/Resolved]

NARRATIVE: CASE EVENT DATE: 20140803
